FAERS Safety Report 15649488 (Version 3)
Quarter: 2019Q3

REPORT INFORMATION
  Report Type: Report from Study
  Country: US (occurrence: US)
  Receive Date: 20181122
  Receipt Date: 20190823
  Transmission Date: 20191004
  Serious: Yes (Other)
  Sender: FDA-Public Use
  Company Number: PHHY2018US159183

PATIENT
  Age: 66 Year
  Sex: Female

DRUGS (1)
  1. GILENYA [Suspect]
     Active Substance: FINGOLIMOD HYDROCHLORIDE
     Indication: MULTIPLE SCLEROSIS
     Dosage: UNK UNK, QD
     Route: 048

REACTIONS (14)
  - Arthralgia [Unknown]
  - Seborrhoeic keratosis [Unknown]
  - Muscle spasms [Unknown]
  - Dizziness [Recovered/Resolved]
  - Visual impairment [Recovered/Resolved]
  - Spinal osteoarthritis [Unknown]
  - Vision blurred [Recovered/Resolved]
  - Leukopenia [Unknown]
  - Gait disturbance [Recovered/Resolved]
  - Eczema asteatotic [Unknown]
  - Disturbance in attention [Unknown]
  - Bradycardia [Recovered/Resolved]
  - Back pain [Unknown]
  - Muscular weakness [Unknown]

NARRATIVE: CASE EVENT DATE: 20161031
